FAERS Safety Report 14842465 (Version 1)
Quarter: 2018Q2

REPORT INFORMATION
  Report Type: Spontaneous
  Country: US (occurrence: US)
  Receive Date: 20180503
  Receipt Date: 20180503
  Transmission Date: 20180711
  Serious: Yes (Other)
  Sender: FDA-Public Use
  Company Number: US-BAYER-2018-083092

PATIENT

DRUGS (4)
  1. ACETYLSALICYLIC ACID({=100 MG) [Suspect]
     Active Substance: ASPIRIN
     Dosage: UNK
     Route: 064
  2. METOPROLOL. [Concomitant]
     Active Substance: METOPROLOL
     Route: 064
  3. OXYGEN. [Concomitant]
     Active Substance: OXYGEN
     Route: 064
  4. PHENYLEPHRINE [Concomitant]
     Active Substance: PHENYLEPHRINE\PHENYLEPHRINE HYDROCHLORIDE
     Route: 064

REACTIONS (3)
  - Foetal exposure during pregnancy [None]
  - Foetal heart rate deceleration abnormality [Recovered/Resolved]
  - Foetal growth restriction [None]
